FAERS Safety Report 8357553 (Version 2)
Quarter: 2013Q1

REPORT INFORMATION
  Report Type: Spontaneous
  Country: US (occurrence: US)
  Receive Date: 20120127
  Receipt Date: 20130128
  Transmission Date: 20140127
  Serious: No
  Sender: FDA-Public Use
  Company Number: US-GLAXOSMITHKLINE-A0951082A

PATIENT
  Sex: Female

DRUGS (2)
  1. MEPRON [Suspect]
     Indication: PRODUCT USED FOR UNKNOWN INDICATION
     Dosage: 5MG UNKNOWN
     Route: 048
     Dates: start: 201101
  2. UNKNOWN [Concomitant]

REACTIONS (2)
  - Mouth injury [Not Recovered/Not Resolved]
  - Product quality issue [Unknown]
